FAERS Safety Report 14832852 (Version 1)
Quarter: 2018Q2

REPORT INFORMATION
  Report Type: Spontaneous
  Country: US (occurrence: US)
  Receive Date: 20180411
  Receipt Date: 20180411
  Transmission Date: 20180711
  Serious: Yes (Hospitalization)
  Sender: FDA-Public Use
  Company Number: None

PATIENT
  Age: 64 Year
  Sex: Female
  Weight: 60.05 kg

DRUGS (10)
  1. HYDROCHLOROTHIAZIDE 25 MG [Concomitant]
     Active Substance: HYDROCHLOROTHIAZIDE
  2. DULAGLUTIDE. [Suspect]
     Active Substance: DULAGLUTIDE
     Indication: DIABETES MELLITUS
     Route: 058
     Dates: start: 20180106, end: 20180119
  3. INSULIN GLARGINE 10 UNITS NIGHTLY [Concomitant]
  4. PANTOPRAZOLE 40 MG DAILY [Concomitant]
  5. PRAVASTATIN 10 MG DAILY [Concomitant]
  6. INSULIN LISPRO 8 UNITS BREAKFAST, 8 UNITS LUNCH, 10 UNITS DINNER [Concomitant]
  7. CALCIUM CARBONATE 500 MG + VITAMIN D2 200 MG [Concomitant]
  8. LEVOTHYROXINE 50 MCG DAILY [Concomitant]
  9. METFORMIN 1,0000 MG TWICE DAILY [Concomitant]
  10. LISINOPRIL 40 MG DAILY [Concomitant]

REACTIONS (13)
  - Decreased appetite [None]
  - Hypophagia [None]
  - Pain [None]
  - Melaena [None]
  - Back pain [None]
  - Abdominal pain [None]
  - Small intestinal obstruction [None]
  - Gastrooesophageal reflux disease [None]
  - Abdominal discomfort [None]
  - Hiatus hernia [None]
  - Hyperglycaemia [None]
  - Nausea [None]
  - Helicobacter test positive [None]

NARRATIVE: CASE EVENT DATE: 20180121
